FAERS Safety Report 21296012 (Version 1)
Quarter: 2022Q3

REPORT INFORMATION
  Report Type: Report from Study
  Country: US (occurrence: US)
  Receive Date: 20220906
  Receipt Date: 20220906
  Transmission Date: 20221027
  Serious: Yes (Other)
  Sender: FDA-Public Use
  Company Number: US-BRISTOL-MYERS SQUIBB COMPANY-2022-096828

PATIENT
  Age: 84 Year
  Sex: Male

DRUGS (1)
  1. LENALIDOMIDE [Suspect]
     Active Substance: LENALIDOMIDE
     Indication: Follicular lymphoma stage III
     Dosage: FREQUENCY: 21
     Route: 065
     Dates: start: 20220725

REACTIONS (15)
  - Head discomfort [Unknown]
  - Eye irritation [Unknown]
  - Tinnitus [Unknown]
  - Vision blurred [Unknown]
  - Hallucination [Unknown]
  - Asthenia [Unknown]
  - Decreased appetite [Unknown]
  - Insomnia [Unknown]
  - Rash [Unknown]
  - Throat irritation [Unknown]
  - Flushing [Unknown]
  - Hypopnoea [Unknown]
  - Myalgia [Unknown]
  - Swelling [Unknown]
  - Back pain [Unknown]
